FAERS Safety Report 7921926-8 (Version None)
Quarter: 2011Q4

REPORT INFORMATION
  Report Type: 
  Country: None (occurrence: None)
  Receive Date: 20111117
  Receipt Date: 20111109
  Transmission Date: 20120403
  Serious: Yes (Other)
  Sender: FDA-Public Use
  Company Number: FR-BAYER-2011-109680

PATIENT
  Age: 42 Year
  Sex: Female

DRUGS (2)
  1. OFLOXACIN [Concomitant]
     Indication: URINARY TRACT INFECTION
     Dosage: UNK
     Dates: start: 20110919, end: 20110928
  2. MOXIFLOXACIN HCL [Suspect]
     Indication: SINUSITIS
     Dosage: UNK
     Route: 048
     Dates: start: 20110908, end: 20110915

REACTIONS (1)
  - UVEITIS [None]
